FAERS Safety Report 20327482 (Version 1)
Quarter: 2022Q1

REPORT INFORMATION
  Report Type: Spontaneous
  Country: JP (occurrence: None)
  Receive Date: 20220112
  Receipt Date: 20220112
  Transmission Date: 20220424
  Serious: Yes (Other)
  Sender: FDA-Public Use
  Company Number: 2022A011343

PATIENT

DRUGS (1)
  1. LOKELMA [Suspect]
     Active Substance: SODIUM ZIRCONIUM CYCLOSILICATE
     Dosage: DOSE UNKNOWN
     Route: 048
     Dates: start: 20220104

REACTIONS (4)
  - Anaphylactic reaction [Unknown]
  - Lip swelling [Unknown]
  - Eye swelling [Unknown]
  - Malaise [Unknown]
